FAERS Safety Report 11155087 (Version 19)
Quarter: 2018Q2

REPORT INFORMATION
  Report Type: Report from Study
  Country: BR (occurrence: BR)
  Receive Date: 20150602
  Receipt Date: 20180612
  Transmission Date: 20180711
  Serious: Yes (Other)
  Sender: FDA-Public Use
  Company Number: PHHY2015BR025990

PATIENT
  Sex: Female
  Weight: 77 kg

DRUGS (5)
  1. SANDOSTATIN LAR DEPOT [Suspect]
     Active Substance: OCTREOTIDE ACETATE
     Dosage: 30 MG, QMO (EVERY 28 DAYS)
     Route: 030
     Dates: start: 20180530
  2. PREMARIN [Concomitant]
     Active Substance: ESTROGENS, CONJUGATED
     Indication: PRODUCT USED FOR UNKNOWN INDICATION
     Route: 048
     Dates: start: 2013, end: 2014
  3. SANDOSTATIN LAR DEPOT [Suspect]
     Active Substance: OCTREOTIDE ACETATE
     Indication: ACROMEGALY
     Dosage: 10 MG, QMO
     Route: 030
     Dates: start: 20080101
  4. CABERGOLINE. [Concomitant]
     Active Substance: CABERGOLINE
     Indication: ACROMEGALY
     Dosage: 2 DF, BIW
     Route: 048
  5. SANDOSTATIN LAR DEPOT [Suspect]
     Active Substance: OCTREOTIDE ACETATE
     Indication: PITUITARY TUMOUR
     Dosage: 30 MG, QMO (EVERY 28 DAYS)
     Route: 030
     Dates: start: 200808

REACTIONS (39)
  - Weight decreased [Not Recovered/Not Resolved]
  - Body height decreased [Not Recovered/Not Resolved]
  - Insulin-like growth factor increased [Not Recovered/Not Resolved]
  - Injection site erythema [Not Recovered/Not Resolved]
  - Malaise [Unknown]
  - Breast enlargement [Recovering/Resolving]
  - Fatigue [Not Recovered/Not Resolved]
  - Injection site infection [Recovered/Resolved]
  - Overweight [Recovering/Resolving]
  - Dry skin [Recovering/Resolving]
  - Goitre [Recovering/Resolving]
  - Weight increased [Recovering/Resolving]
  - Postmenopausal haemorrhage [Recovered/Resolved]
  - Arthralgia [Not Recovered/Not Resolved]
  - Fluid retention [Unknown]
  - Asthenia [Unknown]
  - Inappropriate schedule of drug administration [Unknown]
  - Pain [Not Recovered/Not Resolved]
  - Feeling abnormal [Unknown]
  - Pain in extremity [Not Recovered/Not Resolved]
  - Wrong technique in product usage process [Unknown]
  - Injection site pain [Not Recovered/Not Resolved]
  - Thyroid mass [Recovering/Resolving]
  - Swelling [Not Recovered/Not Resolved]
  - Constipation [Unknown]
  - Injection site haematoma [Not Recovered/Not Resolved]
  - Thyroid disorder [Recovering/Resolving]
  - Cardiac disorder [Recovering/Resolving]
  - Needle issue [Unknown]
  - Injection site bruising [Not Recovered/Not Resolved]
  - Headache [Unknown]
  - Cholelithiasis [Not Recovered/Not Resolved]
  - Injection site haemorrhage [Unknown]
  - Injection site nodule [Not Recovered/Not Resolved]
  - Chromaturia [Recovering/Resolving]
  - Posture abnormal [Unknown]
  - Suffocation feeling [Recovering/Resolving]
  - Somnolence [Unknown]
  - Nervousness [Unknown]

NARRATIVE: CASE EVENT DATE: 2009
